FAERS Safety Report 8033498-0 (Version None)
Quarter: 2012Q1

REPORT INFORMATION
  Report Type: 
  Country: None (occurrence: None)
  Receive Date: 20120110
  Receipt Date: 20120104
  Transmission Date: 20120608
  Serious: Yes (Other)
  Sender: FDA-Public Use
  Company Number: FR-JNJFOC-20120101368

PATIENT
  Age: 65 Year
  Sex: Female
  Weight: 78 kg

DRUGS (7)
  1. NICORETTE [Suspect]
     Route: 062
  2. ASPIRIN [Concomitant]
     Indication: BACK PAIN
     Route: 048
     Dates: start: 20020101
  3. NICOTINE [Suspect]
     Indication: SMOKING CESSATION THERAPY
     Dosage: FIVE PIECES DAILY WHEN SHE STOPPED SMOKING AND WAS CURRENTLY TAKING MORE THAN 20 PIECES DAILY
     Route: 048
  4. NICORETTE [Suspect]
     Indication: SMOKING CESSATION THERAPY
     Route: 062
  5. LORAZEPAM [Concomitant]
     Indication: ANXIOLYTIC THERAPY
     Route: 048
     Dates: start: 20020101
  6. TRAMADOL HCL [Concomitant]
     Indication: BACK PAIN
     Route: 048
     Dates: start: 20020101
  7. TRAMADOL HCL [Concomitant]
     Route: 048
     Dates: start: 20020101

REACTIONS (5)
  - INTENTIONAL DRUG MISUSE [None]
  - HYPERSENSITIVITY [None]
  - BONE PAIN [None]
  - DEPENDENCE [None]
  - INCORRECT DOSE ADMINISTERED [None]
